FAERS Safety Report 13070798 (Version 1)
Quarter: 2016Q4

REPORT INFORMATION
  Report Type: Spontaneous
  Country: CA (occurrence: CA)
  Receive Date: 20161229
  Receipt Date: 20161229
  Transmission Date: 20170207
  Serious: Yes (Other)
  Sender: FDA-Public Use
  Company Number: CA-ORION CORPORATION ORION PHARMA-TREX2016-2789

PATIENT
  Age: 59 Year
  Sex: Female

DRUGS (12)
  1. CYMBALTA [Concomitant]
     Active Substance: DULOXETINE HYDROCHLORIDE
     Route: 065
  2. TYLENOL WITH CODEINE [Concomitant]
     Active Substance: ACETAMINOPHEN\CODEINE PHOSPHATE
     Route: 065
  3. ENBREL [Suspect]
     Active Substance: ETANERCEPT
     Indication: RHEUMATOID ARTHRITIS
     Route: 048
  4. DIDROCAL [Concomitant]
     Active Substance: CALCIUM CARBONATE\ETIDRONATE DISODIUM
     Route: 065
  5. TRAMCET [Concomitant]
     Active Substance: ACETAMINOPHEN\TRAMADOL
     Route: 065
  6. TOPIRAMATE. [Concomitant]
     Active Substance: TOPIRAMATE
     Route: 065
  7. TYLENOL [Concomitant]
     Active Substance: ACETAMINOPHEN
     Route: 065
  8. ZOPICLONE [Concomitant]
     Active Substance: ZOPICLONE
     Route: 065
  9. GABAPENTIN. [Concomitant]
     Active Substance: GABAPENTIN
     Route: 065
  10. NABILONE [Concomitant]
     Active Substance: NABILONE
     Route: 065
  11. METHOTREXATE (TRADE NAME UNKNOWN) [Suspect]
     Active Substance: METHOTREXATE
     Indication: RHEUMATOID ARTHRITIS
     Route: 065
  12. ACETAMINOPHEN W/CODEINE PHOSPHATE [Concomitant]
     Active Substance: ACETAMINOPHEN\CODEINE PHOSPHATE
     Route: 065

REACTIONS (10)
  - Peripheral swelling [Unknown]
  - Local swelling [Unknown]
  - Mobility decreased [Unknown]
  - Emotional disorder [Unknown]
  - Drug ineffective [Unknown]
  - Insomnia [Unknown]
  - Pain of skin [Unknown]
  - Rheumatoid arthritis [Unknown]
  - Pain [Unknown]
  - Activities of daily living impaired [Unknown]
